FAERS Safety Report 6967896-0 (Version None)
Quarter: 2010Q3

REPORT INFORMATION
  Report Type: 
  Country: None (occurrence: None)
  Receive Date: 20100907
  Receipt Date: 20100630
  Transmission Date: 20110219
  Serious: No
  Sender: FDA-Public Use
  Company Number: A0867923A

PATIENT
  Age: 60 Year
  Sex: Male

DRUGS (7)
  1. REQUIP [Suspect]
     Indication: RESTLESS LEGS SYNDROME
     Dosage: 3MG PER DAY
     Route: 048
  2. SAW PALMETTO [Concomitant]
  3. GARLIC CAPSULES [Concomitant]
  4. LISINOPRIL [Concomitant]
  5. LEXAPRO [Concomitant]
  6. WATER PILL [Concomitant]
  7. GINSENG [Concomitant]

REACTIONS (3)
  - FEELING HOT [None]
  - HYPERHIDROSIS [None]
  - NAUSEA [None]
